FAERS Safety Report 9149218 (Version 2)
Quarter: 2013Q2

REPORT INFORMATION
  Report Type: Spontaneous
  Country: US (occurrence: US)
  Receive Date: 20130308
  Receipt Date: 20130426
  Transmission Date: 20140414
  Serious: No
  Sender: FDA-Public Use
  Company Number: US-PFIZER INC-2013077483

PATIENT
  Age: 81 Year
  Sex: Female
  Weight: 77.1 kg

DRUGS (7)
  1. PRISTIQ [Suspect]
     Dosage: 100 MG, 1X/DAY
     Dates: end: 201208
  2. PRISTIQ [Suspect]
     Dosage: 100 MG, 1X/DAY
     Dates: start: 201208, end: 201210
  3. PRISTIQ [Suspect]
     Dosage: 100 MG, 1X/DAY
     Dates: start: 201210, end: 201211
  4. PRISTIQ [Suspect]
     Dosage: 50 MG, UNK
     Dates: start: 2013
  5. FUROSEMIDE [Concomitant]
     Dosage: 5-10MG, 1X/DAY
  6. ZETIA [Concomitant]
     Dosage: 10 MG, UNK
  7. MIRAPEX [Concomitant]
     Dosage: 0.5 MG, 4X/DAY

REACTIONS (3)
  - Nausea [Unknown]
  - Dizziness [Recovered/Resolved]
  - Malaise [Unknown]
